FAERS Safety Report 7912288-0 (Version None)
Quarter: 2011Q4

REPORT INFORMATION
  Report Type: 
  Country: None (occurrence: None)
  Receive Date: 20111114
  Receipt Date: 20111104
  Transmission Date: 20120403
  Serious: Yes (Other)
  Sender: FDA-Public Use
  Company Number: US-BAYER-2011-022879

PATIENT
  Age: 22 Year
  Sex: Female
  Weight: 59.864 kg

DRUGS (5)
  1. BLOOD PRESSURE MEDICATION (NOS) [Concomitant]
     Dosage: UNK
     Dates: start: 20060528, end: 20060501
  2. YAZ [Suspect]
     Indication: CONTRACEPTION
     Dosage: 1 DF, QD
     Route: 048
     Dates: start: 20060401
  3. YASMIN [Suspect]
     Indication: CONTRACEPTION
     Dosage: 1 DF, QD
     Route: 048
     Dates: start: 20010101, end: 20060101
  4. IBUPROFEN (ADVIL) [Concomitant]
     Dosage: UNK UNK, PRN
  5. ^FITROCET^ AN [Concomitant]
     Dosage: UNK
     Dates: start: 20060101

REACTIONS (4)
  - CHOLECYSTITIS CHRONIC [None]
  - VOMITING [None]
  - NAUSEA [None]
  - CHOLECYSTECTOMY [None]
